FAERS Safety Report 4790409-9 (Version None)
Quarter: 2005Q4

REPORT INFORMATION
  Report Type: 
  Country: None (occurrence: None)
  Receive Date: 20051006
  Receipt Date: 20050922
  Transmission Date: 20060501
  Serious: Yes (Other)
  Sender: FDA-Public Use
  Company Number: GBWYE001022SEP05

PATIENT
  Age: 68 Year
  Sex: Female
  Weight: 70 kg

DRUGS (6)
  1. ENBREL [Suspect]
     Indication: DRUG USE FOR UNKNOWN INDICATION
     Dosage: 25MG FREQUENCY UNKNOWN
     Route: 058
     Dates: start: 20050801, end: 20050915
  2. TRAMADOL [Concomitant]
     Indication: PAIN
     Dosage: UNKNOWN
  3. VOLTAROL [Concomitant]
     Indication: INFLAMMATION
     Dosage: UNKNOWN
  4. BENDROFLUMETHIAZIDE [Concomitant]
     Indication: HYPERTENSION
     Dosage: UNKNOWN
  5. BECOTIDE [Concomitant]
     Indication: ASTHMA
     Dosage: UNKNOWN
     Route: 055
  6. SEREVENT [Concomitant]
     Indication: ASTHMA
     Dosage: UNKNOWN
     Route: 055

REACTIONS (2)
  - ANAEMIA [None]
  - NEUTROPENIA [None]
